FAERS Safety Report 6136531-6 (Version None)
Quarter: 2009Q1

REPORT INFORMATION
  Report Type: 
  Country: None (occurrence: None)
  Receive Date: 20090330
  Receipt Date: 20090318
  Transmission Date: 20090719
  Serious: Yes (Death, Hospitalization)
  Sender: FDA-Public Use
  Company Number: FR-PFIZER INC-2006104742

PATIENT

DRUGS (3)
  1. SUNITINIB MALATE [Suspect]
     Indication: NON-SMALL CELL LUNG CANCER
  2. CARBOPLATIN [Suspect]
     Indication: NON-SMALL CELL LUNG CANCER
     Dosage: 690 MG, ON DAY 1 OF 21 DAY CYCLE
     Route: 042
     Dates: start: 20060818, end: 20060818
  3. PACLITAXEL [Suspect]
     Indication: NON-SMALL CELL LUNG CANCER
     Dosage: 320 MG, ON DAY 1 OF 21DAY CYCLE
     Route: 042
     Dates: start: 20060818, end: 20060818

REACTIONS (1)
  - SEPTIC SHOCK [None]
